FAERS Safety Report 6072503-8 (Version None)
Quarter: 2009Q1

REPORT INFORMATION
  Report Type: 
  Country: None (occurrence: None)
  Receive Date: 20090210
  Receipt Date: 20060928
  Transmission Date: 20090719
  Serious: Yes (Hospitalization)
  Sender: FDA-Public Use
  Company Number: AU-PFIZER INC-2006092557

PATIENT

DRUGS (15)
  1. SUNITINIB MALATE [Suspect]
     Indication: METASTATIC RENAL CELL CARCINOMA
     Dosage: 50 MG, 1X/DAY
     Route: 048
     Dates: start: 20060712, end: 20060729
  2. COVERSYL [Concomitant]
     Route: 048
  3. FRUSEMIDE [Concomitant]
     Route: 048
  4. FENTANYL [Concomitant]
     Route: 048
  5. OXYNORM [Concomitant]
     Route: 048
  6. METOCLOPRAMIDE [Concomitant]
     Dosage: UNK
     Route: 048
  7. METOCLOPRAMIDE [Concomitant]
     Route: 058
  8. METOCLOPRAMIDE [Concomitant]
     Route: 030
  9. METOCLOPRAMIDE [Concomitant]
     Route: 042
  10. NEXIUM [Concomitant]
     Route: 048
  11. SENOKOT [Concomitant]
     Route: 048
  12. NILSTAT [Concomitant]
     Route: 048
  13. DEXAMETHASONE [Concomitant]
     Route: 048
  14. DIGOXIN [Concomitant]
     Route: 048
  15. CLEXANE [Concomitant]
     Route: 048

REACTIONS (3)
  - DYSPNOEA [None]
  - HYPERHIDROSIS [None]
  - RESTLESSNESS [None]
